FAERS Safety Report 6926514-8 (Version None)
Quarter: 2010Q3

REPORT INFORMATION
  Report Type: 
  Country: None (occurrence: None)
  Receive Date: 20100816
  Receipt Date: 20100520
  Transmission Date: 20110219
  Serious: No
  Sender: FDA-Public Use
  Company Number: US-ABBOTT-10P-163-0644222-00

PATIENT
  Sex: Male
  Weight: 75.818 kg

DRUGS (4)
  1. SIMCOR [Suspect]
     Indication: DYSLIPIDAEMIA
     Route: 048
     Dates: start: 20100423
  2. COREG [Suspect]
     Indication: ATRIAL FIBRILLATION
     Route: 048
     Dates: start: 20100423
  3. COREG [Suspect]
     Indication: HYPERTENSION
  4. DIOVAN [Concomitant]
     Indication: HYPERTENSION

REACTIONS (2)
  - FLATULENCE [None]
  - HEADACHE [None]
